FAERS Safety Report 4290243-2 (Version None)
Quarter: 2004Q1

REPORT INFORMATION
  Report Type: 
  Country: None (occurrence: None)
  Receive Date: 20040210
  Receipt Date: 20040204
  Transmission Date: 20041129
  Serious: Yes (Hospitalization)
  Sender: FDA-Public Use
  Company Number: FR-BRISTOL-MYERS SQUIBB COMPANY-12496709

PATIENT
  Age: 33 Year
  Sex: Female

DRUGS (1)
  1. SUSTIVA [Suspect]
     Indication: HIV INFECTION
     Dosage: DOSAGE FORM: CAPSULE
     Route: 048
     Dates: start: 20000323, end: 20000327

REACTIONS (4)
  - ASTHENIA [None]
  - CATATONIA [None]
  - DEPRESSION [None]
  - SPEECH DISORDER [None]
